FAERS Safety Report 9354803 (Version 1)
Quarter: 2013Q2

REPORT INFORMATION
  Report Type: Spontaneous
  Country: GR (occurrence: GR)
  Receive Date: 20130619
  Receipt Date: 20130619
  Transmission Date: 20140414
  Serious: Yes (Hospitalization)
  Sender: FDA-Public Use
  Company Number: GR-AMGEN-GRCSP2013025832

PATIENT
  Age: 73 Year
  Sex: Female
  Weight: 70 kg

DRUGS (8)
  1. PROLIA [Suspect]
     Indication: OSTEOPOROSIS
     Dosage: 60 MG, Q6MO
     Route: 058
     Dates: start: 20120720
  2. PREZOLON [Concomitant]
  3. CITRON [Concomitant]
  4. METHOTREXATE [Concomitant]
  5. SINTROM [Concomitant]
  6. CALCIORAL                          /00207901/ [Concomitant]
  7. VITAMIN D3 [Concomitant]
  8. FILICINE [Concomitant]

REACTIONS (2)
  - Lymphangitis [Recovered/Resolved]
  - Cellulitis [Recovered/Resolved]
